FAERS Safety Report 4826282-X (Version None)
Quarter: 2005Q4

REPORT INFORMATION
  Report Type: 
  Country: None (occurrence: None)
  Receive Date: 20051111
  Receipt Date: 20051109
  Transmission Date: 20060501
  Serious: Yes (Death)
  Sender: FDA-Public Use
  Company Number: DE-BRISTOL-MYERS SQUIBB COMPANY-13177126

PATIENT
  Age: 71 Year
  Sex: Female

DRUGS (3)
  1. CETUXIMAB [Suspect]
     Indication: NON-SMALL CELL LUNG CANCER
     Dosage: 02 SEP 05, THE MOST RECENT INFUSIONS OF CETUXIMAB(8TH INFUSION)
     Route: 041
     Dates: start: 20050714
  2. CISPLATIN [Suspect]
     Indication: NON-SMALL CELL LUNG CANCER
     Dosage: 27 AUG 05, THE MOST RECENT INFUSION OF CISPLATIN (3RD INFUSION)
     Route: 042
     Dates: start: 20050714
  3. VINORELBINE [Suspect]
     Indication: NON-SMALL CELL LUNG CANCER
     Dosage: ON 02 SEP 05, THE MOST RECENT INFUSIONS (6TH INFUSION).
     Route: 042
     Dates: start: 20050714

REACTIONS (2)
  - ACUTE PULMONARY OEDEMA [None]
  - VOMITING [None]
